FAERS Safety Report 15877410 (Version 4)
Quarter: 2019Q2

REPORT INFORMATION
  Report Type: Spontaneous
  Country: ES (occurrence: ES)
  Receive Date: 20190128
  Receipt Date: 20190523
  Transmission Date: 20190711
  Serious: Yes (Death, Life-Threatening, Hospitalization, Other)
  Sender: FDA-Public Use
  Company Number: ES-BIOGEN-2019BI00687549

PATIENT
  Age: 36 Year
  Sex: Female

DRUGS (6)
  1. AVONEX [Suspect]
     Active Substance: INTERFERON BETA-1A
     Route: 050
     Dates: start: 201106
  2. METHYLPREDNISOLONE. [Suspect]
     Active Substance: METHYLPREDNISOLONE
     Indication: SECONDARY PROGRESSIVE MULTIPLE SCLEROSIS
     Dosage: PULSES OF FIVE 1-G BOLUSES
     Route: 042
     Dates: start: 200902
  3. METHYLPREDNISOLONE. [Suspect]
     Active Substance: METHYLPREDNISOLONE
     Route: 065
     Dates: start: 201206
  4. METHYLPREDNISOLONE. [Suspect]
     Active Substance: METHYLPREDNISOLONE
     Route: 065
     Dates: start: 201205
  5. AVONEX [Suspect]
     Active Substance: INTERFERON BETA-1A
     Indication: MULTIPLE SCLEROSIS
     Route: 050
     Dates: start: 201105
  6. METHYLPREDNISOLONE. [Suspect]
     Active Substance: METHYLPREDNISOLONE
     Route: 065
     Dates: start: 201202

REACTIONS (11)
  - Ruptured cerebral aneurysm [Fatal]
  - Basilar artery thrombosis [Fatal]
  - Infective aneurysm [Unknown]
  - Secondary progressive multiple sclerosis [Unknown]
  - Ischaemic stroke [Fatal]
  - Aneurysm ruptured [Fatal]
  - Off label use [Unknown]
  - Subarachnoid haemorrhage [Fatal]
  - Hydrocephalus [Fatal]
  - Basilar artery aneurysm [Fatal]
  - Scedosporium infection [Fatal]

NARRATIVE: CASE EVENT DATE: 201206
